FAERS Safety Report 7283137-1 (Version None)
Quarter: 2011Q1

REPORT INFORMATION
  Report Type: 
  Country: None (occurrence: None)
  Receive Date: 20110209
  Receipt Date: 20110131
  Transmission Date: 20110831
  Serious: Yes (Death)
  Sender: FDA-Public Use
  Company Number: US-ROCHE-756631

PATIENT

DRUGS (2)
  1. BEVACIZUMAB [Suspect]
     Route: 031
  2. RANIBIZUMAB [Suspect]
     Route: 031

REACTIONS (2)
  - CARDIAC FAILURE CONGESTIVE [None]
  - MYOCARDIAL INFARCTION [None]
